FAERS Safety Report 10359180 (Version 1)
Quarter: 2014Q3

REPORT INFORMATION
  Report Type: Spontaneous
  Country: US (occurrence: None)
  Receive Date: 20140731
  Receipt Date: 20140731
  Transmission Date: 20150326
  Serious: Yes (Other)
  Sender: FDA-Public Use
  Company Number: None

PATIENT
  Age: 34 Year
  Sex: Female
  Weight: 45.81 kg

DRUGS (1)
  1. LITHIUM [Suspect]
     Active Substance: LITHIUM CARBONATE
     Route: 048
     Dates: start: 20140430, end: 20140729

REACTIONS (4)
  - Anger [None]
  - Homicidal ideation [None]
  - Suicidal ideation [None]
  - Aggression [None]

NARRATIVE: CASE EVENT DATE: 20140729
